FAERS Safety Report 4799196-1 (Version None)
Quarter: 2005Q4

REPORT INFORMATION
  Report Type: 
  Country: None (occurrence: None)
  Receive Date: 20051014
  Receipt Date: 20051005
  Transmission Date: 20060501
  Serious: Yes (Hospitalization)
  Sender: FDA-Public Use
  Company Number: US-MERCK-0510USA03411

PATIENT
  Age: 50 Year
  Sex: Male
  Weight: 80 kg

DRUGS (7)
  1. VIOXX [Suspect]
     Indication: BACK PAIN
     Route: 048
     Dates: start: 19990801, end: 20041101
  2. VIOXX [Suspect]
     Route: 048
     Dates: start: 19990801, end: 20041101
  3. COZAAR [Concomitant]
     Route: 065
  4. PAXIL [Concomitant]
     Route: 065
  5. KLONOPIN [Concomitant]
     Route: 065
  6. NARDIL [Concomitant]
     Route: 065
  7. [THERAPY UNSPECIFIED] [Concomitant]
     Route: 065

REACTIONS (1)
  - MYOCARDIAL INFARCTION [None]
